FAERS Safety Report 25233068 (Version 1)
Quarter: 2025Q2

REPORT INFORMATION
  Report Type: Report from Study
  Country: BR (occurrence: BR)
  Receive Date: 20250424
  Receipt Date: 20250424
  Transmission Date: 20250716
  Serious: Yes (Congenital Anomaly)
  Sender: EMD SERONO INC
  Company Number: BR-Merck Healthcare KGaA-2025020342

PATIENT
  Sex: Female

DRUGS (1)
  1. INTERFERON BETA-1A [Suspect]
     Active Substance: INTERFERON BETA-1A
     Indication: Multiple sclerosis

REACTIONS (2)
  - Trisomy 13 [Unknown]
  - Foetal exposure during pregnancy [Unknown]
